FAERS Safety Report 9291045 (Version 4)
Quarter: 2013Q3

REPORT INFORMATION
  Report Type: Spontaneous
  Country: GB (occurrence: None)
  Receive Date: 20130513
  Receipt Date: 20130731
  Transmission Date: 20140515
  Serious: Yes (Hospitalization)
  Sender: FDA-Public Use
  Company Number: 2013MPI00249

PATIENT
  Age: 67 Year
  Sex: Male

DRUGS (1)
  1. ADCETRIS [Suspect]
     Indication: NON-HODGKIN^S LYMPHOMA RECURRENT
     Dates: start: 20130418

REACTIONS (5)
  - Dehydration [None]
  - Nausea [None]
  - Vomiting [None]
  - Diarrhoea [None]
  - Constipation [None]
